FAERS Safety Report 9250297 (Version 1)
Quarter: 2013Q1

REPORT INFORMATION
  Report Type: Spontaneous
  Country: US (occurrence: None)
  Receive Date: 20121114
  Receipt Date: 20121114
  Transmission Date: 20140127
  Serious: Yes (Hospitalization, Other)
  Sender: FDA-Public Use
  Company Number: A-US2012-59299

PATIENT
  Age: 67 Year
  Sex: Male

DRUGS (6)
  1. TRACLEER [Suspect]
     Indication: PULMONARY ARTERIAL HYPERTENSION
     Route: 048
     Dates: start: 20091119
  2. VENTAVIS [Suspect]
     Indication: PULMONARY ARTERIAL HYPERTENSION
     Route: 055
     Dates: start: 20111119, end: 20111205
  3. VIAGRA (SILDENAFIL CITRATE) [Concomitant]
  4. COUMADIN (WARFARIN SODIUM) [Concomitant]
  5. OXYGEN (OXYGEN) [Concomitant]
  6. TYVASO (TREPROSTINIL SODIUM) [Concomitant]

REACTIONS (5)
  - Pneumonia [None]
  - Hypoglycaemia [None]
  - Anaemia [None]
  - Productive cough [None]
  - Dizziness [None]
